FAERS Safety Report 9693730 (Version 3)
Quarter: 2013Q4

REPORT INFORMATION
  Report Type: Spontaneous
  Country: US (occurrence: US)
  Receive Date: 20131118
  Receipt Date: 20131206
  Transmission Date: 20140711
  Serious: Yes (Other)
  Sender: FDA-Public Use
  Company Number: US-AMGEN-USASP2013073069

PATIENT
  Age: 70 Year
  Sex: Female
  Weight: 72.11 kg

DRUGS (17)
  1. PROLIA [Suspect]
     Indication: OSTEOPOROSIS POSTMENOPAUSAL
     Route: 065
  2. CITALOPRAM [Concomitant]
     Dosage: 10 MG, UNK
     Dates: start: 20130802
  3. LOVASTATIN [Concomitant]
     Dosage: 10 MG, UNK
     Dates: start: 20130819
  4. METOPROLOL SUCCINATE [Concomitant]
     Dosage: 50 MG, UNK
     Dates: start: 20130819
  5. BENICAR HCT [Concomitant]
     Indication: ESSENTIAL HYPERTENSION
     Dosage: 20 MG TO 12.5 MG, UNK
  6. ASPIRIN [Concomitant]
     Dosage: UNK UNK, QD
  7. CALCIUM 600 PLUS VITAMIN D3 [Concomitant]
     Dosage: 2 DF, QD
  8. FISH OIL [Concomitant]
     Dosage: 1200 MG, QD
  9. HYDROCHLOROTHIAZIDE [Concomitant]
     Dosage: 12.5 MG, UNK
  10. IRON [Concomitant]
     Dosage: 325 MG, QD
     Route: 048
  11. MULTIVITAMIN                       /00097801/ [Concomitant]
     Dosage: UNK UNK, QD
  12. POTASSIUM CHLORIDE [Concomitant]
     Dosage: 10 MEQ, QD
  13. VITAMIN D3 [Concomitant]
     Dosage: 1000 UNIT, QD
  14. INFLUENZA VACCINE [Concomitant]
     Dosage: UNK
     Dates: start: 2006, end: 2012
  15. DT VACCINE [Concomitant]
     Dosage: UNK
     Dates: start: 2004
  16. PNEUMOCOCCAL VACCINE [Concomitant]
     Dosage: UNK
     Dates: start: 2004, end: 2009
  17. VARICELLA ZOSTER VACCINE [Concomitant]
     Dosage: UNK
     Dates: start: 2007

REACTIONS (12)
  - Osteomyelitis acute [Unknown]
  - Inappropriate schedule of drug administration [Unknown]
  - Rhinorrhoea [Unknown]
  - Sneezing [Unknown]
  - Anxiety [Recovering/Resolving]
  - Hair disorder [Unknown]
  - Vaginal disorder [Unknown]
  - Bone disorder [Unknown]
  - Chondropathy [Unknown]
  - Upper respiratory tract infection [Unknown]
  - Constipation [Unknown]
  - Rash [Unknown]
